FAERS Safety Report 8798153 (Version 2)
Quarter: 2015Q1

REPORT INFORMATION
  Report Type: Report from Study
  Country: US (occurrence: US)
  Receive Date: 20120920
  Receipt Date: 20150312
  Transmission Date: 20150721
  Serious: Yes (Death)
  Sender: FDA-Public Use
  Company Number: US-ROCHE-1095572

PATIENT
  Sex: Male
  Weight: 71.73 kg

DRUGS (14)
  1. OXYCODONE [Concomitant]
     Active Substance: OXYCODONE
  2. CARBOPLATIN. [Concomitant]
     Active Substance: CARBOPLATIN
  3. SORBITOL. [Concomitant]
     Active Substance: SORBITOL
  4. FLOMAX (UNITED STATES) [Concomitant]
     Route: 065
  5. ARTHROTEC [Concomitant]
     Active Substance: DICLOFENAC SODIUM\MISOPROSTOL
     Route: 065
  6. ATIVAN [Concomitant]
     Active Substance: LORAZEPAM
     Route: 065
  7. AMBIEN [Concomitant]
     Active Substance: ZOLPIDEM TARTRATE
  8. TAXOTERE [Concomitant]
     Active Substance: DOCETAXEL
     Route: 065
  9. ALOXI [Concomitant]
     Active Substance: PALONOSETRON HYDROCHLORIDE
     Route: 065
  10. ZOMETA [Concomitant]
     Active Substance: ZOLEDRONIC ACID
     Route: 042
  11. JANTOVEN [Concomitant]
     Active Substance: WARFARIN SODIUM
     Route: 065
  12. AVASTIN [Suspect]
     Active Substance: BEVACIZUMAB
     Indication: LUNG NEOPLASM MALIGNANT
     Route: 065
  13. GEMZAR [Concomitant]
     Active Substance: GEMCITABINE HYDROCHLORIDE
  14. DECADRON [Concomitant]
     Active Substance: DEXAMETHASONE
     Route: 065

REACTIONS (8)
  - Metastases to liver [Unknown]
  - Diarrhoea [Unknown]
  - Metastases to pelvis [Unknown]
  - Pollakiuria [Unknown]
  - Death [Fatal]
  - Dermatitis [Unknown]
  - Metastases to spine [Unknown]
  - Nocturia [Unknown]
